FAERS Safety Report 10280034 (Version 1)
Quarter: 2014Q3

REPORT INFORMATION
  Report Type: Spontaneous
  Country: IL (occurrence: None)
  Receive Date: 20140701
  Receipt Date: 20140701
  Transmission Date: 20150326
  Serious: Yes (Hospitalization, Congenital Anomaly)
  Sender: FDA-Public Use
  Company Number: 2014HINLIT0583

PATIENT

DRUGS (4)
  1. LITHIUM [Suspect]
     Active Substance: LITHIUM CARBONATE
     Indication: BIPOLAR DISORDER
     Route: 064
  2. VALPROIC ACID (VALPROIC ACID) [Concomitant]
     Active Substance: VALPROIC ACID
  3. VENLAFAXINE [Concomitant]
     Active Substance: VENLAFAXINE HYDROCHLORIDE
  4. OLANZAPINE (OLANZAPINE) [Concomitant]
     Active Substance: OLANZAPINE

REACTIONS (3)
  - Maternal drugs affecting foetus [None]
  - Multiple congenital abnormalities [None]
  - Anencephaly [None]
